FAERS Safety Report 4775426-7 (Version None)
Quarter: 2005Q3

REPORT INFORMATION
  Report Type: 
  Country: None (occurrence: None)
  Receive Date: 20050922
  Receipt Date: 20050908
  Transmission Date: 20060218
  Serious: Yes (Hospitalization, Other)
  Sender: FDA-Public Use
  Company Number: JP-NOVOPROD-246830

PATIENT
  Age: 15 Year
  Sex: Male
  Weight: 26 kg

DRUGS (2)
  1. NORDITROPIN [Suspect]
     Indication: CHONDRODYSTROPHY
     Dates: start: 20030728, end: 20040104
  2. PRIMOBOLAN-DEPOT INJ [Concomitant]
     Dosage: 5 MG, UNK
     Route: 048
     Dates: start: 20031020, end: 20040104

REACTIONS (1)
  - SCOLIOSIS [None]
